FAERS Safety Report 4432660-3 (Version None)
Quarter: 2004Q3

REPORT INFORMATION
  Report Type: 
  Country: None (occurrence: None)
  Receive Date: 20040820
  Receipt Date: 20040802
  Transmission Date: 20050211
  Serious: Yes (Other)
  Sender: FDA-Public Use
  Company Number: USA040363175

PATIENT
  Age: 17 Year
  Sex: Male

DRUGS (15)
  1. STRATTERA [Suspect]
     Indication: ATTENTION DEFICIT/HYPERACTIVITY DISORDER
     Dosage: 90 MG DAY
     Dates: start: 20030701, end: 20031001
  2. LEXAPRO [Concomitant]
  3. ALT/SGPT, ALANINE AMINOTRANSFERASE [Concomitant]
  4. AST/SGOT, ASPARTATE AMINOTRANSFERASE [Concomitant]
  5. AST/SGOT, ASPARTATE AMINOTRANSFERASE [Concomitant]
  6. ALKALINE PHOSPHATASE [Concomitant]
  7. ALKALINE PHOSPHATASE [Concomitant]
  8. GGT, GAMMA GLUTAMYL TRANSFERASE [Concomitant]
  9. GGT, GLUTAMYL TRANSFERASE [Concomitant]
  10. BILIRUBIN , TOTAL/NORMAL [Concomitant]
  11. BILIRUBIN, TOTAL/NORMAL [Concomitant]
  12. SEDIMENTATION RATE [Concomitant]
  13. C-REACTIVE PROTEIN [Concomitant]
  14. ANTINUCLEAR ANTIBODY, (ANA) [Concomitant]
  15. ALKALINE PHOSPHATASE [Concomitant]

REACTIONS (3)
  - CHOLANGITIS SCLEROSING [None]
  - NIGHT SWEATS [None]
  - TREMOR [None]
